FAERS Safety Report 24291857 (Version 2)
Quarter: 2025Q3

REPORT INFORMATION
  Report Type: Spontaneous
  Country: EU (occurrence: EU)
  Receive Date: 20240906
  Receipt Date: 20250723
  Transmission Date: 20251021
  Serious: No
  Sender: ALEXION PHARMACEUTICALS
  Company Number: None

PATIENT
  Age: 51 Year
  Sex: Male
  Weight: 80 kg

DRUGS (1)
  1. DAPAGLIFLOZIN [Suspect]
     Active Substance: DAPAGLIFLOZIN
     Indication: Cardiac failure
     Dosage: 1X PER DAG 1 STUK
     Dates: start: 20230924, end: 20240813

REACTIONS (3)
  - Phimosis [Recovering/Resolving]
  - Penile discharge [Recovering/Resolving]
  - Dry skin [Recovering/Resolving]
